FAERS Safety Report 4988011-9 (Version None)
Quarter: 2006Q2

REPORT INFORMATION
  Report Type: 
  Country: None (occurrence: None)
  Receive Date: 20060424
  Receipt Date: 20060413
  Transmission Date: 20061013
  Serious: Yes (Death, Hospitalization)
  Sender: FDA-Public Use
  Company Number: 2006-BP-04187RO

PATIENT
  Age: 49 Year
  Sex: Male

DRUGS (2)
  1. METHADONE HCL [Suspect]
     Indication: DEPENDENCE
     Dosage: 185 MG DAILY
  2. ANTIRETROVIRAL TREATMENT [Concomitant]

REACTIONS (7)
  - AGITATION [None]
  - BLOOD POTASSIUM DECREASED [None]
  - CONVULSION [None]
  - LOSS OF CONSCIOUSNESS [None]
  - SYNCOPE [None]
  - TORSADE DE POINTES [None]
  - VENTRICULAR TACHYCARDIA [None]
